FAERS Safety Report 10219028 (Version 1)
Quarter: 2014Q2

REPORT INFORMATION
  Report Type: Spontaneous
  Country: JP (occurrence: JP)
  Receive Date: 20140605
  Receipt Date: 20140605
  Transmission Date: 20141212
  Serious: Yes (Other)
  Sender: FDA-Public Use
  Company Number: PHJP2014JP000833

PATIENT
  Sex: 0

DRUGS (1)
  1. TEGRETOL TAB 200MG [Suspect]
     Indication: TRIGEMINAL NEURALGIA
     Dosage: UNK UKN, UNK
     Route: 048

REACTIONS (1)
  - Cataract [Unknown]
